FAERS Safety Report 6839117-0 (Version None)
Quarter: 2010Q2

REPORT INFORMATION
  Report Type: 
  Country: None (occurrence: None)
  Receive Date: 20100628
  Receipt Date: 20100226
  Transmission Date: 20101027
  Serious: Yes (Hospitalization)
  Sender: FDA-Public Use
  Company Number: SOLV00210001254

PATIENT
  Age: 65 Year
  Sex: Male
  Weight: 75 kg

DRUGS (7)
  1. MARINOL [Suspect]
     Indication: DECREASED APPETITE
     Dosage: 5 MILLIGRAM(S)/KILOGRAM QD ORAL DAILY DOSE: 5 MILLIGRAM(S)/KILOGRAM
     Route: 048
     Dates: start: 20070404, end: 20070626
  2. PLACEBO (PLACEBO) [Suspect]
     Indication: NON-SMALL CELL LUNG CANCER
     Dosage: UNKNOWN DAILY ORAL DAILY DOSE: 12.5MG ONCE DAILY WITH A TOTAL DAILY DOSE OF 37.5MG
     Route: 048
     Dates: start: 20070430, end: 20070613
  3. TARCEVA [Suspect]
     Indication: NON-SMALL CELL LUNG CANCER
     Dosage: 150 MILLIGRAM(S) QD ORAL DAILY DOSE: 150 MILLIGRAM(S)
     Route: 048
     Dates: start: 20070430, end: 20070613
  4. MS CONTIN [Concomitant]
  5. EFFEXOR [Concomitant]
  6. MEGACE [Concomitant]
  7. KYTRIL [Concomitant]

REACTIONS (1)
  - MENTAL STATUS CHANGES [None]
